FAERS Safety Report 18441897 (Version 3)
Quarter: 2021Q1

REPORT INFORMATION
  Report Type: Spontaneous
  Country: CA (occurrence: CA)
  Receive Date: 20201029
  Receipt Date: 20210325
  Transmission Date: 20210419
  Serious: Yes (Other)
  Sender: FDA-Public Use
  Company Number: CA-SAMSUNG BIOEPIS-SB-2020-32688

PATIENT
  Age: 25 Year
  Sex: Female

DRUGS (2)
  1. INFLIXIMAB [Suspect]
     Active Substance: INFLIXIMAB
     Indication: PRODUCT USED FOR UNKNOWN INDICATION
     Route: 042
  2. INFLIXIMAB [Suspect]
     Active Substance: INFLIXIMAB
     Indication: COLITIS ULCERATIVE

REACTIONS (12)
  - Contusion [Unknown]
  - Impaired healing [Unknown]
  - Rhinitis [Unknown]
  - Weight fluctuation [Unknown]
  - Off label use [Unknown]
  - Ear infection [Unknown]
  - Weight decreased [Unknown]
  - Abdominal discomfort [Unknown]
  - Cystitis [Unknown]
  - Immunosuppression [Unknown]
  - Scar [Unknown]
  - Intentional product use issue [Unknown]
